FAERS Safety Report 8471675-5 (Version None)
Quarter: 2012Q2

REPORT INFORMATION
  Report Type: 
  Country: None (occurrence: None)
  Receive Date: 20120627
  Receipt Date: 20120620
  Transmission Date: 20120825
  Serious: Yes (Hospitalization)
  Sender: FDA-Public Use
  Company Number: US-GLAXOSMITHKLINE-A0875551A

PATIENT
  Age: 69 Year
  Sex: Male
  Weight: 111.8 kg

DRUGS (8)
  1. ALLEGRA [Concomitant]
  2. NASONEX [Concomitant]
  3. METFORMIN HCL [Concomitant]
  4. AVANDIA [Suspect]
     Indication: DIABETES MELLITUS
     Dosage: 4MG TWICE PER DAY
     Route: 048
     Dates: start: 20000627, end: 20031023
  5. PRILOSEC [Concomitant]
  6. ENALAPRIL MALEATE [Concomitant]
  7. VIOXX [Concomitant]
  8. VERAPAMIL [Concomitant]

REACTIONS (1)
  - MYOCARDIAL INFARCTION [None]
